FAERS Safety Report 18894162 (Version 6)
Quarter: 2021Q2

REPORT INFORMATION
  Report Type: Spontaneous
  Country: US (occurrence: US)
  Receive Date: 20210215
  Receipt Date: 20210604
  Transmission Date: 20210717
  Serious: Yes (Other)
  Sender: FDA-Public Use
  Company Number: NVSC2021US035345

PATIENT
  Sex: Female
  Weight: 52.15 kg

DRUGS (1)
  1. ZOFRAN [Suspect]
     Active Substance: ONDANSETRON HYDROCHLORIDE
     Indication: HYPEREMESIS GRAVIDARUM
     Dosage: 0.25 ML
     Route: 042
     Dates: start: 20080215

REACTIONS (11)
  - Decreased appetite [Unknown]
  - Weight increased [Unknown]
  - Pregnancy with advanced maternal age [Unknown]
  - Abdominal pain [Unknown]
  - Illness [Unknown]
  - Maternal exposure during pregnancy [Unknown]
  - Vaginal haemorrhage [Unknown]
  - Premature delivery [Unknown]
  - Product use in unapproved indication [Unknown]
  - Injury [Unknown]
  - Fall [Unknown]
